FAERS Safety Report 6972900-X (Version None)
Quarter: 2010Q3

REPORT INFORMATION
  Report Type: 
  Country: None (occurrence: None)
  Receive Date: 20100909
  Receipt Date: 20100831
  Transmission Date: 20110219
  Serious: No
  Sender: FDA-Public Use
  Company Number: US-PFIZER INC-2010109675

PATIENT
  Sex: Male

DRUGS (4)
  1. CELEBREX [Suspect]
     Dosage: UNK
  2. CARDURA [Suspect]
     Dosage: UNK
  3. LIPITOR [Suspect]
     Dosage: UNK
  4. PEROXIDE [Suspect]
     Dosage: UNK

REACTIONS (1)
  - SKIN INFECTION [None]
